FAERS Safety Report 7160747-3 (Version None)
Quarter: 2010Q4

REPORT INFORMATION
  Report Type: 
  Country: None (occurrence: None)
  Receive Date: 20101214
  Receipt Date: 20091222
  Transmission Date: 20110411
  Serious: Yes (Other)
  Sender: FDA-Public Use
  Company Number: US-AMGEN-QUU379415

PATIENT

DRUGS (5)
  1. ENBREL [Suspect]
     Indication: RHEUMATOID ARTHRITIS
     Dosage: 50 MG, QWK
     Route: 058
     Dates: start: 20030530
  2. METHOTREXATE [Suspect]
     Dosage: 2.5 MG, QWK
     Route: 048
     Dates: start: 20030101
  3. ALENDRONATE SODIUM [Concomitant]
  4. SIMVASTATIN [Concomitant]
  5. CETIRIZINE HYDROCHLORIDE [Concomitant]

REACTIONS (1)
  - MALIGNANT MELANOMA [None]
